APPROVED DRUG PRODUCT: GALANTAMINE HYDROBROMIDE
Active Ingredient: GALANTAMINE HYDROBROMIDE
Strength: EQ 4MG BASE
Dosage Form/Route: TABLET;ORAL
Application: A077603 | Product #001
Applicant: PHARMOBEDIENT CONSULTING LLC
Approved: Aug 28, 2008 | RLD: No | RS: No | Type: DISCN